FAERS Safety Report 6156143-8 (Version None)
Quarter: 2009Q2

REPORT INFORMATION
  Report Type: 
  Country: None (occurrence: None)
  Receive Date: 20090415
  Receipt Date: 20090407
  Transmission Date: 20091009
  Serious: Yes (Other)
  Sender: FDA-Public Use
  Company Number: US-GENENTECH-214218

PATIENT
  Sex: Female

DRUGS (2)
  1. AVASTIN [Suspect]
     Indication: OVARIAN CANCER
     Dosage: 5 MG/KG, UNK
  2. CYTOXAN [Suspect]
     Indication: OVARIAN CANCER

REACTIONS (1)
  - ASCITES [None]
